FAERS Safety Report 11402538 (Version 1)
Quarter: 2015Q3

REPORT INFORMATION
  Report Type: Spontaneous
  Country: US (occurrence: US)
  Receive Date: 20150821
  Receipt Date: 20150821
  Transmission Date: 20151125
  Serious: Yes (Hospitalization)
  Sender: FDA-Public Use
  Company Number: US-ROCHE-1284240

PATIENT
  Sex: Female

DRUGS (3)
  1. INCIVEK [Suspect]
     Active Substance: TELAPREVIR
     Indication: CHRONIC HEPATITIS C
     Route: 065
  2. RIBAVIRIN. [Suspect]
     Active Substance: RIBAVIRIN
     Indication: CHRONIC HEPATITIS C
     Route: 065
  3. PEGASYS [Suspect]
     Active Substance: PEGINTERFERON ALFA-2A
     Indication: CHRONIC HEPATITIS C
     Route: 065

REACTIONS (18)
  - Urticaria [Unknown]
  - Haemoglobin decreased [Unknown]
  - Drug dose omission [Unknown]
  - Proctalgia [Unknown]
  - Rash [Unknown]
  - Depression [Unknown]
  - Hypophagia [Unknown]
  - Lymphadenopathy [Unknown]
  - Hypersensitivity [Unknown]
  - Fear [Unknown]
  - Anxiety [Unknown]
  - Skin exfoliation [Unknown]
  - Skin disorder [Unknown]
  - Nausea [Unknown]
  - Anaemia [Unknown]
  - Tremor [Unknown]
  - Incontinence [Unknown]
  - Faeces discoloured [Unknown]
